FAERS Safety Report 9642991 (Version 1)
Quarter: 2013Q4

REPORT INFORMATION
  Report Type: Report from Study
  Country: CN (occurrence: CN)
  Receive Date: 20131024
  Receipt Date: 20131024
  Transmission Date: 20140711
  Serious: Yes (Other)
  Sender: FDA-Public Use
  Company Number: CN-ROCHE-1289829

PATIENT
  Sex: 0

DRUGS (4)
  1. CAPECITABINE [Suspect]
     Indication: GASTRIC CANCER
     Dosage: 625-850 MG/M2, REPEATED EVERY 21 DAYS, 6-8 TREATMENT COURSES IN TOTAL.
     Route: 048
  2. CAPECITABINE [Suspect]
     Dosage: 850- 1000 MG/M2, REPEATED EVERY 21 DAYS, 6-8 TREATMENT COURSES IN TOTAL.
     Route: 048
  3. EPIRUBICIN [Suspect]
     Indication: GASTRIC CANCER
     Dosage: 60-75 MG/M2
     Route: 042
  4. OXALIPLATIN [Suspect]
     Indication: GASTRIC CANCER
     Dosage: DAY 1
     Route: 041

REACTIONS (12)
  - Palmar-plantar erythrodysaesthesia syndrome [Recovering/Resolving]
  - Neurotoxicity [Recovering/Resolving]
  - Neutrophil count decreased [Recovering/Resolving]
  - Platelet count decreased [Recovering/Resolving]
  - Nausea [Recovering/Resolving]
  - Vomiting [Recovering/Resolving]
  - Diarrhoea [Recovering/Resolving]
  - Stomatitis [Recovering/Resolving]
  - Nervous system neoplasm [Recovering/Resolving]
  - Anaemia [Recovering/Resolving]
  - Hepatic function abnormal [Recovering/Resolving]
  - White blood cell count decreased [Recovering/Resolving]
